FAERS Safety Report 14291871 (Version 3)
Quarter: 2018Q3

REPORT INFORMATION
  Report Type: Spontaneous
  Country: JP (occurrence: JP)
  Receive Date: 20171215
  Receipt Date: 20180711
  Transmission Date: 20181010
  Serious: Yes (Death, Hospitalization, Other)
  Sender: FDA-Public Use
  Company Number: JP-009507513-1710JPN003691J

PATIENT
  Age: 83 Year
  Sex: Male
  Weight: 54 kg

DRUGS (8)
  1. PREDNISOLONE. [Suspect]
     Active Substance: PREDNISOLONE
     Dosage: 10 MG, QD
     Route: 048
     Dates: start: 20171201, end: 20171205
  2. PREDNISOLONE. [Suspect]
     Active Substance: PREDNISOLONE
     Dosage: 35 MG, QD
     Route: 048
     Dates: start: 20171023, end: 20171030
  3. PREDNISOLONE. [Suspect]
     Active Substance: PREDNISOLONE
     Dosage: 30 MG, QD
     Route: 048
     Dates: start: 20171031, end: 20171106
  4. PREDNISOLONE. [Suspect]
     Active Substance: PREDNISOLONE
     Dosage: 15 MG, QD
     Route: 048
     Dates: start: 20171123, end: 20171130
  5. KEYTRUDA [Suspect]
     Active Substance: PEMBROLIZUMAB
     Indication: LUNG ADENOCARCINOMA STAGE III
     Dosage: 200 MG, EVERY 4 WEEKS
     Route: 041
     Dates: start: 20171005, end: 20171108
  6. PREDNISOLONE. [Suspect]
     Active Substance: PREDNISOLONE
     Dosage: 25 MG, QD
     Route: 048
     Dates: start: 20171107, end: 20171114
  7. PREDNISOLONE. [Suspect]
     Active Substance: PREDNISOLONE
     Dosage: 20 MG, QD
     Route: 048
     Dates: start: 20171115, end: 20171122
  8. PREDNISOLONE. [Suspect]
     Active Substance: PREDNISOLONE
     Indication: TUMOUR INVASION
     Dosage: 40 MG, QD
     Route: 048
     Dates: start: 20171016, end: 20171022

REACTIONS (3)
  - Tumour invasion [Recovered/Resolved]
  - Decreased appetite [Unknown]
  - Pneumonia klebsiella [Fatal]

NARRATIVE: CASE EVENT DATE: 20171013
